FAERS Safety Report 15420388 (Version 1)
Quarter: 2018Q3

REPORT INFORMATION
  Report Type: Spontaneous
  Country: None (occurrence: FI)
  Receive Date: 20180924
  Receipt Date: 20180924
  Transmission Date: 20181010
  Serious: Yes (Hospitalization)
  Sender: FDA-Public Use
  Company Number: FI-LABORATOIRE HRA PHARMA-2055291

PATIENT
  Sex: Female

DRUGS (1)
  1. LYSODREN [Suspect]
     Active Substance: MITOTANE
     Indication: ADJUVANT THERAPY

REACTIONS (3)
  - General physical health deterioration [None]
  - Off label use [None]
  - Psychotic disorder [None]
